FAERS Safety Report 11789528 (Version 1)
Quarter: 2015Q4

REPORT INFORMATION
  Report Type: Spontaneous
  Country: US (occurrence: None)
  Receive Date: 20151130
  Receipt Date: 20151130
  Transmission Date: 20160305
  Serious: Yes (Life-Threatening)
  Sender: FDA-Public Use
  Company Number: None

PATIENT
  Age: 67 Year
  Sex: Male
  Weight: 48.9 kg

DRUGS (1)
  1. LIDOCAINE. [Suspect]
     Active Substance: LIDOCAINE
     Indication: CATHETER PLACEMENT
     Route: 058
     Dates: start: 20150710, end: 20150710

REACTIONS (4)
  - Hypertension [None]
  - Palpitations [None]
  - Dysarthria [None]
  - Agitation [None]

NARRATIVE: CASE EVENT DATE: 20150710
